FAERS Safety Report 5701193-6 (Version None)
Quarter: 2008Q2

REPORT INFORMATION
  Report Type: 
  Country: None (occurrence: None)
  Receive Date: 20080410
  Receipt Date: 20080408
  Transmission Date: 20081010
  Serious: Yes (Life-Threatening, Other)
  Sender: FDA-Public Use
  Company Number: JP-BOEHRINGER INGELHEIM GMBH, GERMANY-2008-BP-01615NB

PATIENT
  Sex: Female
  Weight: 44.5 kg

DRUGS (9)
  1. MICARDIS [Suspect]
     Indication: CARDIAC FAILURE
     Route: 048
     Dates: start: 20071128, end: 20080111
  2. HALFDIGOXIN [Suspect]
     Indication: CARDIAC FAILURE
     Route: 048
     Dates: start: 20071201, end: 20080119
  3. TETUCUR S [Suspect]
     Indication: IRON DEFICIENCY ANAEMIA
     Route: 048
     Dates: start: 20071206, end: 20080111
  4. TETUCUR S [Suspect]
     Indication: POLLAKIURIA
  5. SAWADARON [Suspect]
     Indication: POLLAKIURIA
     Route: 048
     Dates: start: 20071205, end: 20080111
  6. ALDACTONE [Suspect]
     Indication: CARDIAC FAILURE
     Route: 048
     Dates: start: 20071129, end: 20071228
  7. KIFROBIT [Suspect]
     Indication: CEREBRAL INFARCTION
     Route: 042
     Dates: start: 20071228, end: 20080101
  8. PICILLIBACTA [Suspect]
     Indication: PNEUMONIA
     Route: 042
     Dates: start: 20080101, end: 20080107
  9. LASIX [Concomitant]
     Indication: CARDIAC FAILURE
     Route: 048
     Dates: start: 20071129

REACTIONS (6)
  - AGRANULOCYTOSIS [None]
  - CEREBRAL INFARCTION [None]
  - HEPATIC FUNCTION ABNORMAL [None]
  - IRON DEFICIENCY ANAEMIA [None]
  - PNEUMONIA [None]
  - POLLAKIURIA [None]
